FAERS Safety Report 9110468 (Version 1)
Quarter: 2013Q1

REPORT INFORMATION
  Report Type: Spontaneous
  Country: US (occurrence: US)
  Receive Date: 20130219
  Receipt Date: 20130219
  Transmission Date: 20140127
  Serious: Yes (Hospitalization)
  Sender: FDA-Public Use
  Company Number: US-BRACCO-008895

PATIENT
  Age: 43 Year
  Sex: Male
  Weight: 122 kg

DRUGS (5)
  1. NITRO [Concomitant]
  2. PEPCID [Concomitant]
  3. ISOVUE 370 [Suspect]
     Indication: CHEST PAIN
     Route: 013
     Dates: start: 20121120, end: 20121120
  4. ISOVUE 370 [Suspect]
     Indication: STENT PLACEMENT
     Route: 013
     Dates: start: 20121120, end: 20121120
  5. ASPIRIN [Concomitant]

REACTIONS (3)
  - Blood pressure decreased [Unknown]
  - Urticaria [Unknown]
  - Flushing [Unknown]
